FAERS Safety Report 9797361 (Version 2)
Quarter: 2014Q1

REPORT INFORMATION
  Report Type: Report from Study
  Country: AU (occurrence: AU)
  Receive Date: 20140106
  Receipt Date: 20140219
  Transmission Date: 20141002
  Serious: Yes (Hospitalization, Other)
  Sender: FDA-Public Use
  Company Number: AU-BIOGENIDEC-2013BI124007

PATIENT
  Age: 47 Year
  Sex: Female

DRUGS (5)
  1. TYSABRI [Suspect]
     Indication: RELAPSING-REMITTING MULTIPLE SCLEROSIS
     Route: 042
     Dates: start: 20080807
  2. EFFEXOR [Concomitant]
     Route: 048
     Dates: start: 20130418
  3. OXYBUTININ [Concomitant]
     Route: 048
     Dates: start: 20121112
  4. PARACETAMOL [Concomitant]
     Route: 048
     Dates: start: 20130815
  5. CHOLECALCIFEROL [Concomitant]
     Route: 048
     Dates: start: 20081211

REACTIONS (1)
  - Pertussis [Recovered/Resolved]
